FAERS Safety Report 4615459-4 (Version None)
Quarter: 2005Q1

REPORT INFORMATION
  Report Type: 
  Country: None (occurrence: None)
  Receive Date: 20050317
  Receipt Date: 20050304
  Transmission Date: 20050727
  Serious: Yes (Death, Hospitalization, Other)
  Sender: FDA-Public Use
  Company Number: 2005031023

PATIENT
  Age: 85 Year
  Sex: Male

DRUGS (1)
  1. CARDURAN (DOXAZOSIN) [Suspect]
     Indication: BENIGN PROSTATIC HYPERPLASIA
     Dosage: 2 MG (2 MG, 1 IN 1 D), ORAL
     Route: 048
     Dates: start: 20000401, end: 20040611

REACTIONS (3)
  - LUNG DISORDER [None]
  - LUNG INFECTION [None]
  - PULMONARY OEDEMA [None]
